FAERS Safety Report 4866326-2 (Version None)
Quarter: 2005Q4

REPORT INFORMATION
  Report Type: 
  Country: None (occurrence: None)
  Receive Date: 20051221
  Receipt Date: 20051206
  Transmission Date: 20060501
  Serious: Yes (Hospitalization)
  Sender: FDA-Public Use
  Company Number: 2005BI021763

PATIENT
  Age: 57 Year
  Sex: Female
  Weight: 72.5755 kg

DRUGS (2)
  1. AVONEX [Suspect]
     Indication: MULTIPLE SCLEROSIS
     Dosage: 22.5 UG;QW;IM; SEE IMAGE
     Route: 030
     Dates: start: 20051004, end: 20051011
  2. AVONEX [Suspect]
     Indication: MULTIPLE SCLEROSIS
     Dosage: 22.5 UG;QW;IM; SEE IMAGE
     Route: 030
     Dates: start: 20051018

REACTIONS (3)
  - DIPLEGIA [None]
  - DISEASE RECURRENCE [None]
  - MYELITIS TRANSVERSE [None]
